FAERS Safety Report 14890170 (Version 3)
Quarter: 2018Q4

REPORT INFORMATION
  Report Type: Spontaneous
  Country: US (occurrence: US)
  Receive Date: 20180514
  Receipt Date: 20181102
  Transmission Date: 20190204
  Serious: No
  Sender: FDA-Public Use
  Company Number: US-PFIZER INC-2018191127

PATIENT
  Age: 28 Year
  Sex: Female

DRUGS (1)
  1. XELJANZ XR [Suspect]
     Active Substance: TOFACITINIB CITRATE
     Dosage: 11 MG, UNK (X30)
     Dates: start: 20180413

REACTIONS (4)
  - Migraine [Unknown]
  - Acne [Unknown]
  - Stress [Unknown]
  - Product dose omission [Unknown]

NARRATIVE: CASE EVENT DATE: 201804
